FAERS Safety Report 9494615 (Version 1)
Quarter: 2013Q3

REPORT INFORMATION
  Report Type: Spontaneous
  Country: US (occurrence: None)
  Receive Date: 20130830
  Receipt Date: 20130830
  Transmission Date: 20140515
  Serious: No
  Sender: FDA-Public Use
  Company Number: None

PATIENT
  Age: 53 Year
  Sex: Female
  Weight: 56.7 kg

DRUGS (3)
  1. LORAZEPAM [Suspect]
     Indication: ANXIETY
     Dosage: 2X DAILY  MOUTH?08/16/2014 - 08/17/2014
     Route: 048
  2. LORAZEPAM [Suspect]
     Indication: SLEEP DISORDER
     Dosage: 2X DAILY  MOUTH?08/16/2014 - 08/17/2014
     Route: 048
  3. ZERTEC [Concomitant]

REACTIONS (3)
  - Drug ineffective [None]
  - Product formulation issue [None]
  - Product quality issue [None]
